FAERS Safety Report 24918077 (Version 1)
Quarter: 2025Q1

REPORT INFORMATION
  Report Type: Spontaneous
  Country: IL (occurrence: IL)
  Receive Date: 20250203
  Receipt Date: 20250203
  Transmission Date: 20250408
  Serious: Yes (Other)
  Sender: PFIZER
  Company Number: IL-PFIZER INC-PV202500012051

PATIENT
  Age: 70 Year

DRUGS (1)
  1. LORLATINIB [Suspect]
     Active Substance: LORLATINIB
     Dates: start: 202501, end: 202501

REACTIONS (2)
  - Pneumonitis [Recovered/Resolved]
  - Hallucination [Recovered/Resolved]
